FAERS Safety Report 12180237 (Version 3)
Quarter: 2020Q1

REPORT INFORMATION
  Report Type: Report from Study
  Country: GB (occurrence: GB)
  Receive Date: 20160315
  Receipt Date: 20200108
  Transmission Date: 20200409
  Serious: Yes (Other)
  Sender: FDA-Public Use
  Company Number: PHHO2016GB000852

PATIENT
  Sex: Female

DRUGS (1)
  1. SECUKINUMAB. [Suspect]
     Active Substance: SECUKINUMAB
     Indication: PSORIASIS
     Dosage: FOETAL DRUG EXPOSURE VIA FATHER
     Route: 050

REACTIONS (2)
  - Paternal exposure during pregnancy [Unknown]
  - Abortion spontaneous [Unknown]
